FAERS Safety Report 9736664 (Version 1)
Quarter: 2013Q4

REPORT INFORMATION
  Report Type: Spontaneous
  Country: US (occurrence: US)
  Receive Date: 20131206
  Receipt Date: 20131206
  Transmission Date: 20140711
  Serious: Yes (Hospitalization)
  Sender: FDA-Public Use
  Company Number: US-GILEAD-2009-0023254

PATIENT
  Age: 46 Year
  Sex: Female
  Weight: 50.8 kg

DRUGS (12)
  1. LETAIRIS [Suspect]
     Indication: PULMONARY ARTERIAL HYPERTENSION
     Route: 048
     Dates: start: 200707
  2. REMODULIN [Concomitant]
  3. REVATIO [Concomitant]
  4. COUMADIN [Concomitant]
  5. LASIX [Concomitant]
  6. METOLAZONE [Concomitant]
  7. SPIRONOLACTONE [Concomitant]
  8. PREDNISONE [Concomitant]
  9. LEXAPRO [Concomitant]
  10. XANAX [Concomitant]
  11. FENTANYL [Concomitant]
  12. DARVON [Concomitant]

REACTIONS (2)
  - Fluid retention [Not Recovered/Not Resolved]
  - Dyspnoea [Recovered/Resolved]
